FAERS Safety Report 25445827 (Version 1)
Quarter: 2025Q2

REPORT INFORMATION
  Report Type: Spontaneous
  Country: CH (occurrence: CH)
  Receive Date: 20250617
  Receipt Date: 20250617
  Transmission Date: 20250717
  Serious: Yes (Death, Life-Threatening, Hospitalization, Other)
  Sender: BRISTOL-MYERS SQUIBB COMPANY
  Company Number: None

PATIENT
  Age: 76 Year
  Sex: Male
  Weight: 70.0 kg

DRUGS (36)
  1. ELIQUIS [Suspect]
     Active Substance: APIXABAN
     Indication: Ventricular fibrillation
     Route: 048
     Dates: start: 20241029, end: 202411
  2. ELIQUIS [Suspect]
     Active Substance: APIXABAN
     Indication: Atrial fibrillation
  3. ELIQUIS [Suspect]
     Active Substance: APIXABAN
     Indication: Anticoagulant therapy
  4. ENOXAPARIN SODIUM [Suspect]
     Active Substance: ENOXAPARIN SODIUM
     Indication: Thrombosis prophylaxis
     Route: 058
     Dates: start: 20241021, end: 20241102
  5. PREDNISONE [Suspect]
     Active Substance: PREDNISONE
     Indication: Myasthenia gravis
     Route: 048
     Dates: start: 202410
  6. PREDNISOLONE [Suspect]
     Active Substance: PREDNISOLONE
     Indication: Myasthenia gravis
     Route: 048
     Dates: start: 202409, end: 20240925
  7. PREDNISOLONE [Suspect]
     Active Substance: PREDNISOLONE
     Route: 048
     Dates: start: 20241005
  8. AZATHIOPRINE [Suspect]
     Active Substance: AZATHIOPRINE
     Indication: Myasthenia gravis
     Dosage: DOSAGE NOT SPECIFIED
     Route: 048
     Dates: end: 20241004
  9. VALGANCICLOVIR HYDROCHLORIDE [Suspect]
     Active Substance: VALGANCICLOVIR HYDROCHLORIDE
     Indication: Cytomegalovirus colitis
     Dosage: DOSAGE NOT SPECIFIED
     Route: 048
     Dates: start: 20241007
  10. MAGNESIUM ASPARTATE HYDROCHLORIDE [Concomitant]
     Active Substance: MAGNESIUM ASPARTATE HYDROCHLORIDE
     Indication: Product used for unknown indication
     Route: 048
  11. MESTINON [Concomitant]
     Active Substance: PYRIDOSTIGMINE BROMIDE
     Indication: Product used for unknown indication
     Route: 048
     Dates: end: 20241107
  12. SUPRADYN PRO ENERGY COMPLEX [Concomitant]
     Indication: Product used for unknown indication
     Route: 048
  13. SODIUM BICARBONATE [Concomitant]
     Active Substance: SODIUM BICARBONATE
     Indication: Product used for unknown indication
     Route: 048
  14. NEBIVOLOL MEPHA [Concomitant]
     Indication: Product used for unknown indication
     Route: 048
  15. NEBIVOLOL MEPHA [Concomitant]
     Route: 048
  16. PHOSCAP [Concomitant]
     Indication: Product used for unknown indication
     Dosage: 3X/DAY
     Route: 048
  17. OLODATEROL HYDROCHLORIDE\TIOTROPIUM BROMIDE MONOHYDRATE [Concomitant]
     Active Substance: OLODATEROL HYDROCHLORIDE\TIOTROPIUM BROMIDE MONOHYDRATE
     Indication: Product used for unknown indication
     Route: 055
  18. PROCTO GLYVENOL [LIDOCAINE;TRIBENOSIDE] [Concomitant]
     Indication: Product used for unknown indication
     Route: 061
  19. BECOZYM [BIOTIN;CYANOCOBALAMIN;DEXPANTHENOL;NICOTINAMIDE;PYRIDOXINE HY [Concomitant]
     Indication: Infection prophylaxis
     Dosage: 3 TIMES A WEEK
     Route: 048
  20. SULFAMETHOXAZOLE\TRIMETHOPRIM [Concomitant]
     Active Substance: SULFAMETHOXAZOLE\TRIMETHOPRIM
     Indication: Infection prophylaxis
     Route: 048
  21. PREGABALIN AXAPHARM [Concomitant]
     Indication: Product used for unknown indication
     Route: 048
  22. OXYPLASTIN [Concomitant]
     Indication: Product used for unknown indication
     Route: 061
  23. NEOSTIGMINE BROMIDE [Concomitant]
     Active Substance: NEOSTIGMINE BROMIDE
     Indication: Product used for unknown indication
     Route: 048
     Dates: start: 20241107
  24. GANCICLOVIR [Concomitant]
     Active Substance: GANCICLOVIR
     Indication: Product used for unknown indication
     Route: 042
     Dates: start: 20241002, end: 20241106
  25. PIPERACILLIN SODIUM\TAZOBACTAM SODIUM [Concomitant]
     Active Substance: PIPERACILLIN SODIUM\TAZOBACTAM SODIUM
     Indication: Gastroenteritis Escherichia coli
     Route: 042
     Dates: start: 20241030, end: 20241104
  26. PIPERACILLIN SODIUM\TAZOBACTAM SODIUM [Concomitant]
     Active Substance: PIPERACILLIN SODIUM\TAZOBACTAM SODIUM
     Indication: Pneumonia
     Route: 042
     Dates: start: 20241108, end: 20241112
  27. PIPERACILLIN SODIUM\TAZOBACTAM SODIUM [Concomitant]
     Active Substance: PIPERACILLIN SODIUM\TAZOBACTAM SODIUM
     Indication: Sepsis
  28. POLYETHYLENE GLYCOL 4000 [Concomitant]
     Active Substance: POLYETHYLENE GLYCOL 4000
     Indication: Product used for unknown indication
     Route: 048
     Dates: end: 202409
  29. LYMAN 50000 EMGEL [Concomitant]
     Indication: Product used for unknown indication
     Route: 061
  30. MUCO MEPHA [Concomitant]
     Indication: Product used for unknown indication
     Route: 048
  31. ESOMEPRAZOLE MAGNESIUM [Concomitant]
     Active Substance: ESOMEPRAZOLE MAGNESIUM
     Indication: Product used for unknown indication
     Route: 048
  32. POTASSIUM CHLORIDE [Concomitant]
     Active Substance: POTASSIUM CHLORIDE
     Indication: Product used for unknown indication
     Route: 048
  33. CALCIMAGON D3 FORTE [Concomitant]
     Indication: Product used for unknown indication
     Route: 048
  34. POTASSIUM CHLORIDE [Concomitant]
     Active Substance: POTASSIUM CHLORIDE
     Indication: Product used for unknown indication
     Route: 048
  35. CHOLECALCIFEROL [Concomitant]
     Active Substance: CHOLECALCIFEROL
     Indication: Infection prophylaxis
     Dosage: 3 MALS PRO WOCHE
     Route: 048
  36. SPIRONOLACTONE [Concomitant]
     Active Substance: SPIRONOLACTONE
     Indication: Product used for unknown indication

REACTIONS (5)
  - Intestinal haemorrhage [Fatal]
  - Cytomegalovirus colitis [Recovering/Resolving]
  - Thrombocytopenia [Fatal]
  - Septic shock [Fatal]
  - Leukopenia [Fatal]

NARRATIVE: CASE EVENT DATE: 20240901
